FAERS Safety Report 5692554-2 (Version None)
Quarter: 2008Q2

REPORT INFORMATION
  Report Type: 
  Country: None (occurrence: None)
  Receive Date: 20080401
  Receipt Date: 20080320
  Transmission Date: 20081010
  Serious: Yes (Death, Hospitalization)
  Sender: FDA-Public Use
  Company Number: 2008BI002451

PATIENT
  Age: 52 Year
  Sex: Female

DRUGS (1)
  1. TYSABRI [Suspect]
     Indication: MULTIPLE SCLEROSIS
     Dosage: 300 MG;QM;IV
     Route: 042
     Dates: start: 20070928, end: 20080130

REACTIONS (5)
  - INFECTION [None]
  - NEUROGENIC BLADDER [None]
  - PNEUMONIA [None]
  - QUADRIPLEGIA [None]
  - URINARY TRACT INFECTION [None]
